FAERS Safety Report 7043781-3 (Version None)
Quarter: 2010Q4

REPORT INFORMATION
  Report Type: 
  Country: None (occurrence: None)
  Receive Date: 20101013
  Receipt Date: 20101006
  Transmission Date: 20110411
  Serious: Yes (Death, Other)
  Sender: FDA-Public Use
  Company Number: US-AMGEN-QUU436491

PATIENT
  Sex: Male
  Weight: 88.5 kg

DRUGS (8)
  1. NPLATE [Suspect]
     Indication: IDIOPATHIC THROMBOCYTOPENIC PURPURA
     Dates: start: 20100310, end: 20100428
  2. ARANESP [Concomitant]
  3. CORTICOSTEROIDS [Concomitant]
     Dates: start: 20100210
  4. IMMU-G [Concomitant]
     Dates: start: 20070627
  5. RITUXIMAB [Concomitant]
     Dates: start: 20060804
  6. CYCLOPHOSPHAMIDE [Concomitant]
     Dates: start: 20091021
  7. RITUXAN [Concomitant]
     Dates: start: 20090119
  8. FLUDARABINE [Concomitant]
     Dates: start: 20091021

REACTIONS (8)
  - DRUG INEFFECTIVE [None]
  - ECCHYMOSIS [None]
  - FALL [None]
  - FATIGUE [None]
  - INFLAMMATION [None]
  - POOR QUALITY SLEEP [None]
  - SPLENIC RUPTURE [None]
  - SPLENOMEGALY [None]
